FAERS Safety Report 25681146 (Version 1)
Quarter: 2025Q3

REPORT INFORMATION
  Report Type: Spontaneous
  Country: US (occurrence: US)
  Receive Date: 20250814
  Receipt Date: 20250814
  Transmission Date: 20251021
  Serious: Yes (Other)
  Sender: BIOVITRUM
  Company Number: US-BIOVITRUM-2025-US-011145

PATIENT
  Age: 82 Year
  Sex: Female

DRUGS (1)
  1. ANAKINRA [Suspect]
     Active Substance: ANAKINRA
     Indication: Erdheim-Chester disease
     Dates: start: 2015

REACTIONS (2)
  - Amyloidosis [Unknown]
  - Off label use [Unknown]

NARRATIVE: CASE EVENT DATE: 20150101
